FAERS Safety Report 9129081 (Version 1)
Quarter: 2013Q1

REPORT INFORMATION
  Report Type: Report from Study
  Country: US (occurrence: US)
  Receive Date: 20130228
  Receipt Date: 20130228
  Transmission Date: 20140127
  Serious: No
  Sender: FDA-Public Use
  Company Number: US-ABBOTT-12P-163-1019253-00

PATIENT
  Sex: Male

DRUGS (3)
  1. ANDROGEL [Suspect]
     Indication: HYPOGONADISM MALE
     Dosage: 3 PUMPS
     Route: 061
     Dates: start: 20120220, end: 20120531
  2. ANDROGEL [Suspect]
     Indication: BLOOD TESTOSTERONE DECREASED
     Dosage: 4 PUMPS DAILY
     Route: 061
     Dates: start: 20120531, end: 20120807
  3. ANDROGEL [Suspect]
     Dosage: 5 PUMPS DAILY
     Route: 061
     Dates: start: 20120807

REACTIONS (5)
  - Incorrect dose administered [Not Recovered/Not Resolved]
  - Self-medication [Not Recovered/Not Resolved]
  - Fatigue [Recovering/Resolving]
  - Blood testosterone abnormal [Recovered/Resolved]
  - Blood testosterone abnormal [Recovered/Resolved]
